FAERS Safety Report 16699648 (Version 2)
Quarter: 2019Q3

REPORT INFORMATION
  Report Type: Report from Study
  Country: AU (occurrence: AU)
  Receive Date: 20190813
  Receipt Date: 20190815
  Transmission Date: 20191004
  Serious: Yes (Hospitalization, Other)
  Sender: FDA-Public Use
  Company Number: AU-BRISTOL-MYERS SQUIBB COMPANY-BMS-2019-066976

PATIENT
  Age: 66 Year
  Sex: Female
  Weight: 76.6 kg

DRUGS (2)
  1. NIVOLUMAB [Suspect]
     Active Substance: NIVOLUMAB
     Indication: OVARIAN CANCER
     Dosage: 251 MILLIGRAM
     Route: 042
     Dates: start: 20190607, end: 20190719
  2. IPILIMUMAB [Suspect]
     Active Substance: IPILIMUMAB
     Indication: OVARIAN CANCER
     Dosage: 84 MILLIGRAM
     Route: 042
     Dates: start: 20190607, end: 20190719

REACTIONS (2)
  - Proctalgia [Recovered/Resolved with Sequelae]
  - Clostridium difficile colitis [Recovered/Resolved]

NARRATIVE: CASE EVENT DATE: 20190706
